FAERS Safety Report 12862235 (Version 3)
Quarter: 2017Q2

REPORT INFORMATION
  Report Type: Spontaneous
  Country: US (occurrence: US)
  Receive Date: 20161019
  Receipt Date: 20170403
  Transmission Date: 20170830
  Serious: No
  Sender: FDA-Public Use
  Company Number: US-JNJFOC-20161000661

PATIENT
  Sex: Male

DRUGS (4)
  1. FINASTERIDE. [Concomitant]
     Active Substance: FINASTERIDE
     Indication: PROSTATE CANCER
     Route: 065
  2. TAMSULOSIN [Concomitant]
     Active Substance: TAMSULOSIN
     Indication: PROSTATE CANCER
     Route: 065
  3. ZYTIGA [Suspect]
     Active Substance: ABIRATERONE ACETATE
     Indication: PRODUCT USED FOR UNKNOWN INDICATION
     Route: 048
     Dates: start: 20160831, end: 201609
  4. TRAMADOL. [Concomitant]
     Active Substance: TRAMADOL
     Indication: PROSTATE CANCER
     Route: 065

REACTIONS (11)
  - Drug ineffective [Unknown]
  - Bone loss [Unknown]
  - Lethargy [Unknown]
  - Asthenia [Unknown]
  - Muscle atrophy [Unknown]
  - Hot flush [Unknown]
  - Feeling cold [Unknown]
  - Insomnia [Unknown]
  - Pain [Unknown]
  - Diarrhoea [Unknown]
  - Vomiting [Unknown]
